FAERS Safety Report 14739577 (Version 1)
Quarter: 2018Q2

REPORT INFORMATION
  Report Type: Report from Study
  Country: BR (occurrence: BR)
  Receive Date: 20180410
  Receipt Date: 20180410
  Transmission Date: 20180711
  Serious: Yes (Other)
  Sender: FDA-Public Use
  Company Number: BR-ROCHE-2100555

PATIENT
  Sex: Female
  Weight: 70 kg

DRUGS (2)
  1. HERCEPTIN [Suspect]
     Active Substance: TRASTUZUMAB
     Indication: HER-2 POSITIVE BREAST CANCER
     Dosage: FIRST LINE OF TREATMENT
     Route: 065
     Dates: start: 20150101, end: 20150630
  2. PACLITAXEL. [Concomitant]
     Active Substance: PACLITAXEL
     Indication: HER-2 POSITIVE BREAST CANCER
     Dosage: FIRST LINE OF TREATMENT
     Route: 065
     Dates: start: 20150101, end: 20150630

REACTIONS (2)
  - HER-2 positive breast cancer [Unknown]
  - Drug ineffective [Unknown]
